FAERS Safety Report 6457700-1 (Version None)
Quarter: 2009Q4

REPORT INFORMATION
  Report Type: 
  Country: None (occurrence: None)
  Receive Date: 20091125
  Receipt Date: 20091117
  Transmission Date: 20100525
  Serious: Yes (Life-Threatening, Hospitalization, Disabling)
  Sender: FDA-Public Use
  Company Number: GB-AMGEN-US240309

PATIENT
  Sex: Female

DRUGS (7)
  1. ENBREL [Suspect]
     Indication: RHEUMATOID ARTHRITIS
     Route: 058
     Dates: start: 20070515, end: 20070821
  2. FOLIC ACID [Concomitant]
     Route: 048
     Dates: start: 20070703
  3. FUROSEMIDE [Concomitant]
     Indication: JOINT SWELLING
     Dosage: 40 MG, UNKNOWN FREQUENCY
     Route: 048
     Dates: start: 19970101
  4. PARACETAMOL [Concomitant]
     Dosage: 1G 4 TIMES A DAY, AS NEEDED
     Route: 048
  5. PREMARIN [Concomitant]
     Indication: MENOPAUSAL SYMPTOMS
     Dosage: 1.25 MG, FREQUENCY UNKNOWN
     Route: 048
     Dates: start: 20070824
  6. METHOTREXATE [Concomitant]
     Indication: RHEUMATOID ARTHRITIS
     Dosage: 32.5 MG, FREQUENCY UNKNOWN
     Route: 048
  7. AMLODIPINE [Concomitant]
     Indication: HYPERTENSION
     Dosage: 10 MG, FREQUENCY UNKNOWN
     Route: 048
     Dates: start: 20030101

REACTIONS (2)
  - HAEMORRHAGIC STROKE [None]
  - TREMOR [None]
